FAERS Safety Report 12133720 (Version 2)
Quarter: 2016Q1

REPORT INFORMATION
  Report Type: Spontaneous
  Country: IT (occurrence: IT)
  Receive Date: 20160301
  Receipt Date: 20160304
  Transmission Date: 20160526
  Serious: Yes (Other)
  Sender: FDA-Public Use
  Company Number: IT-ACCORD-038170

PATIENT
  Age: 79 Year
  Sex: Male
  Weight: 64 kg

DRUGS (2)
  1. FLUOROURACIL. [Suspect]
     Active Substance: FLUOROURACIL
     Indication: COLON CANCER STAGE IV
     Dosage: ALSO RECEIVED 2856 MG CYCLICAL INTRAVENOUS DRIP ON SAME DAY
     Route: 040
     Dates: start: 20160126, end: 20160126
  2. IRINOTECAN [Suspect]
     Active Substance: IRINOTECAN
     Indication: COLON CANCER STAGE IV
     Route: 042
     Dates: start: 20160126, end: 20160126

REACTIONS (4)
  - Hiccups [Recovered/Resolved with Sequelae]
  - Vomiting [Recovered/Resolved with Sequelae]
  - Diarrhoea [Recovered/Resolved with Sequelae]
  - Nausea [Recovered/Resolved with Sequelae]

NARRATIVE: CASE EVENT DATE: 20160131
